FAERS Safety Report 9440317 (Version 3)
Quarter: 2013Q3

REPORT INFORMATION
  Report Type: Spontaneous
  Country: US (occurrence: US)
  Receive Date: 20130805
  Receipt Date: 20130903
  Transmission Date: 20140515
  Serious: Yes (Hospitalization, Other)
  Sender: FDA-Public Use
  Company Number: US-PFIZER INC-2013223613

PATIENT
  Age: 28 Year
  Sex: Male
  Weight: 109 kg

DRUGS (2)
  1. VIAGRA [Suspect]
     Indication: THROMBOSIS
     Dosage: 50 MG, 1X/DAY
     Dates: end: 2013
  2. VIAGRA [Suspect]
     Indication: ISCHAEMIC LIMB PAIN

REACTIONS (2)
  - Cerebrovascular accident [Recovered/Resolved]
  - Off label use [Recovered/Resolved]
